FAERS Safety Report 15626126 (Version 2)
Quarter: 2018Q4

REPORT INFORMATION
  Report Type: Report from Study
  Country: US (occurrence: US)
  Receive Date: 20181116
  Receipt Date: 20181219
  Transmission Date: 20190205
  Serious: Yes (Hospitalization, Other)
  Sender: FDA-Public Use
  Company Number: US-AMGEN-USASL2018161190

PATIENT
  Age: 78 Year
  Sex: Male

DRUGS (1)
  1. REPATHA [Suspect]
     Active Substance: EVOLOCUMAB
     Indication: HYPERLIPIDAEMIA
     Dosage: 140 MG, Q2WK
     Route: 058
     Dates: start: 2016

REACTIONS (11)
  - Oropharyngeal pain [Unknown]
  - Heart rate irregular [Unknown]
  - Chest discomfort [Unknown]
  - Peripheral swelling [Unknown]
  - Joint injury [Unknown]
  - Contusion [Unknown]
  - Choking [Unknown]
  - Myalgia [Unknown]
  - Fall [Unknown]
  - Joint swelling [Unknown]
  - Chest pain [Unknown]
